FAERS Safety Report 5358111-2 (Version None)
Quarter: 2007Q2

REPORT INFORMATION
  Report Type: 
  Country: None (occurrence: None)
  Receive Date: 20070530
  Receipt Date: 20070131
  Transmission Date: 20071010
  Serious: Yes (Other)
  Sender: FDA-Public Use
  Company Number: US200701006359

PATIENT
  Age: 28 Year
  Weight: 117.9 kg

DRUGS (4)
  1. ZYPREXA [Suspect]
     Indication: BIPOLAR DISORDER
     Dosage: SEE IMAGE
     Dates: start: 20050101
  2. HALDOL SOLUTAB [Concomitant]
  3. DEPAKOTE [Concomitant]
  4. RISPERDAL [Concomitant]

REACTIONS (1)
  - WEIGHT INCREASED [None]
